FAERS Safety Report 8862154 (Version 1)
Quarter: 2012Q4

REPORT INFORMATION
  Report Type: 
  Country: BR (occurrence: BR)
  Receive Date: 20121026
  Receipt Date: 20121026
  Transmission Date: 20130627
  Serious: Yes (Hospitalization)
  Sender: FDA-Public Use
  Company Number: BR-BAYER-2012-110043

PATIENT
  Sex: Male
  Weight: 61 kg

DRUGS (5)
  1. SORAFENIB (RAF KINASE INHIBITOR) [Suspect]
     Indication: CARCINOMA HEPATOCELLULAR
     Dosage: 200 mg, BID
     Route: 048
     Dates: start: 20110223, end: 20110308
  2. SORAFENIB (RAF KINASE INHIBITOR) [Suspect]
     Indication: CARCINOMA HEPATOCELLULAR
     Dosage: 200 mg, QID
     Dates: start: 20110309
  3. NEXIUM [Concomitant]
     Indication: GASTRIC DISORDER
     Dosage: 1 DF, UNK
     Route: 048
     Dates: start: 2011
  4. VITAMIN D [Concomitant]
     Indication: SUPPLEMENTATION THERAPY
     Dosage: 10 gtt, QD
     Route: 048
     Dates: start: 201204
  5. COMPLEX B [Concomitant]
     Indication: SUPPLEMENTATION THERAPY
     Dosage: 1 DF, QD
     Route: 048
     Dates: start: 201209

REACTIONS (7)
  - Anaemia [Recovered/Resolved]
  - Diarrhoea haemorrhagic [Recovered/Resolved]
  - Diarrhoea [Not Recovered/Not Resolved]
  - Anaemia [Recovered/Resolved]
  - Colitis [Recovered/Resolved]
  - Osteitis [Recovered/Resolved]
  - Weight decreased [Recovered/Resolved]
